FAERS Safety Report 5907900-1 (Version None)
Quarter: 2008Q4

REPORT INFORMATION
  Report Type: 
  Country: None (occurrence: None)
  Receive Date: 20081003
  Receipt Date: 20080930
  Transmission Date: 20090506
  Serious: Yes (Other)
  Sender: FDA-Public Use
  Company Number: US-JNJCH-2008025391

PATIENT
  Sex: Female

DRUGS (1)
  1. FRESH CITRUS LISTERINE POCKETPAKS [Suspect]
     Indication: DRUG USE FOR UNKNOWN INDICATION
     Dosage: TEXT:ONE STRIP 2 TIMES A DAY
     Route: 048
     Dates: start: 20080915, end: 20080917

REACTIONS (1)
  - OEDEMA MOUTH [None]
